FAERS Safety Report 18715160 (Version 2)
Quarter: 2021Q1

REPORT INFORMATION
  Report Type: Spontaneous
  Country: AU (occurrence: AU)
  Receive Date: 20210108
  Receipt Date: 20210111
  Transmission Date: 20210419
  Serious: Yes (Hospitalization, Other)
  Sender: FDA-Public Use
  Company Number: AU-ORION CORPORATION ORION PHARMA-21_00012439

PATIENT
  Sex: Female

DRUGS (1)
  1. METHOTREXATE (METHOTREXATE SODIUM) [Suspect]
     Active Substance: METHOTREXATE SODIUM
     Indication: PSORIATIC ARTHROPATHY
     Route: 065

REACTIONS (14)
  - Headache [Unknown]
  - Asthenia [Unknown]
  - Pyrexia [Unknown]
  - Dizziness [Unknown]
  - Haematochezia [Unknown]
  - Blood urine present [Unknown]
  - Vision blurred [Unknown]
  - Contraindicated product administered [Unknown]
  - Colitis ulcerative [Unknown]
  - Oropharyngeal pain [Unknown]
  - Rash macular [Unknown]
  - Infection [Unknown]
  - Pallor [Unknown]
  - Chills [Unknown]
